FAERS Safety Report 5137927-1 (Version None)
Quarter: 2006Q4

REPORT INFORMATION
  Report Type: 
  Country: None (occurrence: None)
  Receive Date: 20061030
  Receipt Date: 20060213
  Transmission Date: 20070319
  Serious: No
  Sender: FDA-Public Use
  Company Number: US-GLAXOSMITHKLINE-A0593470A

PATIENT
  Sex: Female

DRUGS (8)
  1. ADVAIR HFA [Suspect]
     Indication: CHRONIC OBSTRUCTIVE PULMONARY DISEASE
     Dosage: 1BLS TWICE PER DAY
     Route: 055
  2. ALBUTEROL [Concomitant]
  3. ATROVENT [Concomitant]
  4. KLOR-CON [Concomitant]
  5. FUROSEMIDE [Concomitant]
  6. ATENOLOL [Concomitant]
  7. ENALAPRIL MALEATE [Concomitant]
  8. PAIN MEDICATION [Concomitant]

REACTIONS (2)
  - DYSPNOEA [None]
  - PHARMACEUTICAL PRODUCT COMPLAINT [None]
